FAERS Safety Report 7748516 (Version 2)
Quarter: 2012Q4

REPORT INFORMATION
  Report Type: Spontaneous
  Country: US (occurrence: None)
  Receive Date: 20101210
  Receipt Date: 20120913
  Transmission Date: 20130627
  Serious: Yes (Other)
  Sender: FDA-Public Use
  Company Number: 2010MA004937

PATIENT
  Sex: Female
  Weight: 72.58 kg

DRUGS (44)
  1. METOCLOPRAMIDE [Suspect]
     Indication: ACID REFLUX
     Route: 048
     Dates: start: 20040317, end: 20090703
  2. LISINOPRIL [Concomitant]
  3. ZOLOFT [Concomitant]
  4. LIPITOR [Concomitant]
  5. PREVACID [Concomitant]
  6. AMITRIPTYLINE [Concomitant]
  7. NITROGLYCERIN [Concomitant]
  8. TRIAMTERENE [Concomitant]
  9. METOPROLOL [Concomitant]
  10. SUCRALFATE [Concomitant]
  11. PROCHLORPERAZINE [Concomitant]
  12. HYDROCODONE W/APAP [Concomitant]
  13. NAPROXEN [Concomitant]
  14. BACLOFEN [Concomitant]
  15. TIGAN [Concomitant]
  16. HYDROXYZINE [Concomitant]
  17. TETRACYCLINE [Concomitant]
  18. TRAMADOL [Concomitant]
  19. PROTONIX [Concomitant]
  20. PROCHLORPERAZINE [Concomitant]
  21. FAMOTIDINE [Concomitant]
  22. GLIPIZIDE [Concomitant]
  23. CEPHALEXIN [Concomitant]
  24. AMOXICILLIN [Concomitant]
  25. TRIMETHOBENZAMIDE [Concomitant]
  26. HCTZ [Concomitant]
  27. PRILOSEC [Concomitant]
  28. ENALAPRIL [Concomitant]
  29. ZOFRAN [Concomitant]
  30. OMEPRAZOLE [Concomitant]
  31. LORAZEPAM [Concomitant]
  32. GEMFIBROZIL [Concomitant]
  33. SMZ/TMP DS 800-160 TAB (GENERIC) [Concomitant]
  34. APAP W/CODEINE [Concomitant]
  35. PENICILLIN [Concomitant]
  36. LEVAQUIN [Concomitant]
  37. LEXAPRO [Concomitant]
  38. CITALOPRAM [Concomitant]
  39. LOVASTATIN [Concomitant]
  40. CIPROFLOXACIN [Concomitant]
  41. AMOXICILLIN [Concomitant]
  42. RANITIDINE [Concomitant]
  43. ZOLPIDEM [Concomitant]
  44. ESTAZOLAM [Concomitant]

REACTIONS (8)
  - Tardive dyskinesia [None]
  - Akathisia [None]
  - Restless legs syndrome [None]
  - Extrapyramidal disorder [None]
  - Tremor [None]
  - Economic problem [None]
  - Dyskinesia [None]
  - Emotional disorder [None]
